FAERS Safety Report 4353367-7 (Version None)
Quarter: 2004Q2

REPORT INFORMATION
  Report Type: 
  Country: None (occurrence: None)
  Receive Date: 20040430
  Receipt Date: 20040419
  Transmission Date: 20050107
  Serious: No
  Sender: FDA-Public Use
  Company Number: US-JNJFOC-20031101675

PATIENT
  Age: 78 Year
  Sex: Male
  Weight: 86.1834 kg

DRUGS (7)
  1. DITROPAN XL [Suspect]
     Dosage: 10 MG, 2 IN 1 DAY
     Dates: start: 20030926
  2. DETROL [Suspect]
  3. PLAVIX [Concomitant]
  4. DIABETA [Concomitant]
  5. ZYLOPRIM [Concomitant]
  6. ASPIRIN [Concomitant]
  7. VITAMIN E [Concomitant]

REACTIONS (2)
  - DRUG EFFECT DECREASED [None]
  - OEDEMA PERIPHERAL [None]
